FAERS Safety Report 9726774 (Version 1)
Quarter: 2013Q4

REPORT INFORMATION
  Report Type: Spontaneous
  Country: US (occurrence: US)
  Receive Date: 20131203
  Receipt Date: 20131203
  Transmission Date: 20140711
  Serious: No
  Sender: FDA-Public Use
  Company Number: US-NOVEN-13US006041

PATIENT
  Age: 65 Year
  Sex: Male

DRUGS (10)
  1. FENTANYL [Suspect]
     Indication: PAIN
     Dosage: 100 UG/HR Q 3 DAYS
     Route: 062
  2. BUPROPION [Concomitant]
     Indication: DEPRESSION
     Dosage: 100 MG, UNK
  3. EQUATE STOOL SOFTENER [Concomitant]
     Indication: CONSTIPATION
     Dosage: UNK
  4. NITROGLYCERIN [Concomitant]
     Indication: ANGINA PECTORIS
     Dosage: 0.4 MG, PRN
  5. OMEPRAZON [Concomitant]
     Indication: BARRETT^S OESOPHAGUS
     Dosage: 20 MG, QD
  6. OXYBUTYNIN [Concomitant]
     Indication: PRODUCT USED FOR UNKNOWN INDICATION
     Dosage: UNK
  7. OXYCODONE [Concomitant]
     Indication: PAIN
     Dosage: UNK
  8. TERAZOSIN [Concomitant]
     Indication: PRODUCT USED FOR UNKNOWN INDICATION
     Dosage: UNK
  9. TOPIRAMATE [Concomitant]
     Indication: PRODUCT USED FOR UNKNOWN INDICATION
     Dosage: UNK
  10. VITAMIN B6 [Concomitant]
     Indication: OSTEOPOROSIS

REACTIONS (1)
  - Drug withdrawal syndrome [Recovered/Resolved]
